FAERS Safety Report 18112379 (Version 1)
Quarter: 2020Q3

REPORT INFORMATION
  Report Type: Spontaneous
  Country: US (occurrence: US)
  Receive Date: 20200804
  Receipt Date: 20200804
  Transmission Date: 20201103
  Serious: Yes (Hospitalization)
  Sender: FDA-Public Use
  Company Number: None

PATIENT
  Age: 57 Year
  Sex: Female

DRUGS (1)
  1. COSENTYX [Suspect]
     Active Substance: SECUKINUMAB
     Indication: PSORIATIC ARTHROPATHY
     Dosage: ?          OTHER DOSE:2 PENS; Q4WK SQ?
     Route: 058
     Dates: start: 20190511

REACTIONS (5)
  - Rash [None]
  - Arthralgia [None]
  - Food poisoning [None]
  - Therapy interrupted [None]
  - Diarrhoea [None]

NARRATIVE: CASE EVENT DATE: 20200803
